FAERS Safety Report 15271904 (Version 1)
Quarter: 2018Q3

REPORT INFORMATION
  Report Type: Spontaneous
  Country: ES (occurrence: ES)
  Receive Date: 20180813
  Receipt Date: 20180813
  Transmission Date: 20181010
  Serious: Yes (Life-Threatening, Hospitalization)
  Sender: FDA-Public Use
  Company Number: ES-ROCHE-2168012

PATIENT
  Age: 55 Year
  Sex: Male

DRUGS (5)
  1. LORMETAZEPAM [Suspect]
     Active Substance: LORMETAZEPAM
     Indication: PRODUCT USED FOR UNKNOWN INDICATION
     Route: 048
     Dates: start: 20180714, end: 20180714
  2. LITHIUM CHLORIDE [Suspect]
     Active Substance: LITHIUM CHLORIDE
     Indication: PRODUCT USED FOR UNKNOWN INDICATION
     Route: 048
     Dates: start: 20180714, end: 20180714
  3. BENEXOL B1 B6 B12 [Concomitant]
     Dosage: FOR INTENTIONAL SELF?INJURY
     Route: 048
     Dates: start: 20180714, end: 20180714
  4. CLONAZEPAM. [Suspect]
     Active Substance: CLONAZEPAM
     Indication: PRODUCT USED FOR UNKNOWN INDICATION
     Route: 048
     Dates: start: 20180714, end: 20180714
  5. FENOBARBITAL [Suspect]
     Active Substance: PHENOBARBITAL
     Indication: PRODUCT USED FOR UNKNOWN INDICATION
     Route: 048
     Dates: start: 20180714, end: 20180714

REACTIONS (4)
  - Somnolence [Recovered/Resolved]
  - Tremor [Recovered/Resolved]
  - Vomiting [Recovered/Resolved]
  - Hyperreflexia [Recovered/Resolved]

NARRATIVE: CASE EVENT DATE: 20180716
